FAERS Safety Report 8918131 (Version 2)
Quarter: 2012Q4

REPORT INFORMATION
  Report Type: 
  Country: TW (occurrence: TW)
  Receive Date: 20121120
  Receipt Date: 20121129
  Transmission Date: 20130627
  Serious: Yes (Other)
  Sender: FDA-Public Use
  Company Number: PHHY2012TW105151

PATIENT
  Sex: Female

DRUGS (3)
  1. ZOMETA [Suspect]
     Route: 042
  2. AUGMENTIN [Concomitant]
     Dosage: 750 mg, BID
  3. CHEMOTHERAPEUTICS NOS [Concomitant]

REACTIONS (2)
  - Breast cancer recurrent [Unknown]
  - Osteonecrosis of jaw [Recovering/Resolving]
